FAERS Safety Report 9019666 (Version 1)
Quarter: 2013Q1

REPORT INFORMATION
  Report Type: Report from Study
  Country: HU (occurrence: HU)
  Receive Date: 20130118
  Receipt Date: 20130118
  Transmission Date: 20140127
  Serious: Yes (Hospitalization)
  Sender: FDA-Public Use
  Company Number: HU-ROCHE-1180849

PATIENT
  Age: 75 None
  Sex: Female
  Weight: 58.07 kg

DRUGS (1)
  1. RANIBIZUMAB [Suspect]
     Indication: RETINAL VEIN OCCLUSION
     Dosage: LAST DOSE: 08/NOV/2012
     Route: 050
     Dates: start: 20121108, end: 20130114

REACTIONS (1)
  - Cerebrovascular accident [Recovering/Resolving]
